FAERS Safety Report 4832784-2 (Version None)
Quarter: 2005Q4

REPORT INFORMATION
  Report Type: 
  Country: None (occurrence: None)
  Receive Date: 20051117
  Receipt Date: 20051117
  Transmission Date: 20060501
  Serious: Yes (Other)
  Sender: FDA-Public Use
  Company Number: None

PATIENT
  Sex: Female
  Weight: 65.318 kg

DRUGS (1)
  1. FEXOFENADINE HCL [Suspect]
     Indication: SEASONAL ALLERGY
     Dosage: 1 DAY PO
     Route: 048
     Dates: start: 20050920, end: 20051111

REACTIONS (14)
  - CONDITION AGGRAVATED [None]
  - CONSTIPATION [None]
  - DRUG EFFECT DECREASED [None]
  - DRY EYE [None]
  - FEELING ABNORMAL [None]
  - HYPERSENSITIVITY [None]
  - INSOMNIA [None]
  - IRRITABILITY [None]
  - LOSS OF LIBIDO [None]
  - MALAISE [None]
  - NERVOUSNESS [None]
  - PHARMACEUTICAL PRODUCT COMPLAINT [None]
  - PRURITUS [None]
  - THERAPEUTIC RESPONSE UNEXPECTED WITH DRUG SUBSTITUTION [None]
